FAERS Safety Report 17159641 (Version 1)
Quarter: 2019Q4

REPORT INFORMATION
  Report Type: Report from Study
  Country: US (occurrence: US)
  Receive Date: 20191216
  Receipt Date: 20191216
  Transmission Date: 20200122
  Serious: Yes (Hospitalization, Other)
  Sender: FDA-Public Use
  Company Number: US-ASTELLAS-2019US032814

PATIENT
  Age: 67 Year
  Sex: Male

DRUGS (1)
  1. ENZALUTAMIDE [Suspect]
     Active Substance: ENZALUTAMIDE
     Indication: PROSTATE CANCER
     Route: 048
     Dates: start: 2018

REACTIONS (6)
  - Skin lesion [Unknown]
  - Pain in extremity [Unknown]
  - Pain [Unknown]
  - Arthralgia [Unknown]
  - Sluggishness [Unknown]
  - Seizure [Unknown]

NARRATIVE: CASE EVENT DATE: 20190910
